FAERS Safety Report 6869217-0 (Version None)
Quarter: 2010Q3

REPORT INFORMATION
  Report Type: 
  Country: None (occurrence: None)
  Receive Date: 20100722
  Receipt Date: 20080822
  Transmission Date: 20110219
  Serious: No
  Sender: FDA-Public Use
  Company Number: US-PFIZER INC-2008058112

PATIENT
  Sex: Male
  Weight: 55.79 kg

DRUGS (4)
  1. CHANTIX [Suspect]
     Indication: SMOKING CESSATION THERAPY
     Route: 048
     Dates: start: 20080623
  2. DIGOXIN [Concomitant]
  3. TERAZOSIN HCL [Concomitant]
  4. CLONAZEPAM [Concomitant]

REACTIONS (5)
  - ABNORMAL DREAMS [None]
  - DEPRESSION [None]
  - FATIGUE [None]
  - PALPITATIONS [None]
  - POOR QUALITY SLEEP [None]
